FAERS Safety Report 10371124 (Version 1)
Quarter: 2014Q1

REPORT INFORMATION
  Report Type: Spontaneous
  Country: US (occurrence: None)
  Receive Date: 20140306
  Receipt Date: 20140306
  Transmission Date: 20141002
  Serious: Yes (Other)
  Sender: FDA-Public Use
  Company Number: 163-21880-13010289

PATIENT
  Age: 60 Year
  Sex: Male
  Weight: 74.84 kg

DRUGS (10)
  1. REVLIMID [Suspect]
     Indication: PLASMA CELL MYELOMA
     Route: 048
     Dates: start: 20120417
  2. CALCIUM (CALCIUM) [Concomitant]
  3. GABAPENTIN (GABAPENTIN) [Concomitant]
  4. GENERLAC (LACTULOSE) [Concomitant]
  5. HYDROMORPHONE HCL (HYDROMORPHONE HYDROCHLORIDE) [Concomitant]
  6. LASIX (FUROSEMIDE) (TABLETS) [Concomitant]
  7. MAGNESIUM (MAGNESIUM) (TABLETS) [Concomitant]
  8. NEUPOGEN (FILGRASTIM) (TABLETS) [Concomitant]
  9. OMEPRAZOLE (OMEPRAZOLE) (TABLETS) [Concomitant]
  10. OXYCONTIN (OXYCODONE HYDROCHLORIDE) (TABLETS) [Concomitant]

REACTIONS (2)
  - Pyrexia [None]
  - Weight decreased [None]
